FAERS Safety Report 10648679 (Version 1)
Quarter: 2014Q4

REPORT INFORMATION
  Report Type: Spontaneous
  Country: US (occurrence: None)
  Receive Date: 20141205
  Receipt Date: 20141205
  Transmission Date: 20150529
  Serious: No
  Sender: FDA-Public Use
  Company Number: 163-POMAL-14091851

PATIENT
  Age: 57 Year
  Sex: Female
  Weight: 72.6 kg

DRUGS (14)
  1. ONDANSETRON. [Concomitant]
     Active Substance: ONDANSETRON
  2. TRAMADOL (TRAMADOL) [Concomitant]
     Active Substance: TRAMADOL
  3. ALPRAZOLAM (ALPRAZOLAM) [Concomitant]
     Active Substance: ALPRAZOLAM
  4. SYNTHROID [Concomitant]
     Active Substance: LEVOTHYROXINE SODIUM
  5. ALLERGY (CHLORPHENAMINE) [Concomitant]
  6. COUMADIN [Concomitant]
     Active Substance: WARFARIN SODIUM
  7. FISH OIL (FISH OIL) [Concomitant]
     Active Substance: FISH OIL
  8. LEVOTHYROXINE (LEVOTHYROXINE) [Concomitant]
     Active Substance: LEVOTHYROXINE
  9. VESICARE [Concomitant]
     Active Substance: SOLIFENACIN SUCCINATE
  10. DEXAMETHASONE (DEXAMETHASONE) [Concomitant]
     Active Substance: DEXAMETHASONE
  11. FLOMAX [Concomitant]
     Active Substance: TAMSULOSIN HYDROCHLORIDE
  12. POMALYST [Suspect]
     Active Substance: POMALIDOMIDE
     Indication: PLASMA CELL MYELOMA
     Route: 048
     Dates: start: 201304
  13. FUROSEMIDE (FUROSEMIDE) [Concomitant]
     Active Substance: FUROSEMIDE
  14. NORCO (PARACETAMOL, HYDROCODONE BITARTRATE) [Concomitant]

REACTIONS (3)
  - Back pain [None]
  - Depression [None]
  - Crying [None]
